FAERS Safety Report 24943902 (Version 1)
Quarter: 2025Q1

REPORT INFORMATION
  Report Type: Spontaneous
  Country: US (occurrence: US)
  Receive Date: 20250207
  Receipt Date: 20250207
  Transmission Date: 20250408
  Serious: No
  Sender: PFIZER
  Company Number: US-PFIZER INC-202500027641

PATIENT

DRUGS (2)
  1. PAXLOVID [Suspect]
     Active Substance: NIRMATRELVIR\RITONAVIR
     Indication: COVID-19 treatment
     Dates: end: 20250204
  2. ASPIRIN [Suspect]
     Active Substance: ASPIRIN

REACTIONS (1)
  - Oral discomfort [Unknown]

NARRATIVE: CASE EVENT DATE: 20250101
